FAERS Safety Report 16182736 (Version 2)
Quarter: 2019Q2

REPORT INFORMATION
  Report Type: Report from Study
  Country: US (occurrence: US)
  Receive Date: 20190411
  Receipt Date: 20190419
  Transmission Date: 20190711
  Serious: Yes (Death, Other)
  Sender: FDA-Public Use
  Company Number: US-ACADIA PHARMACEUTICALS INC.-ACA-2019-012466

PATIENT
  Age: 76 Year
  Sex: Male

DRUGS (2)
  1. NUPLAZID [Suspect]
     Active Substance: PIMAVANSERIN TARTRATE
     Indication: PROSTATE CANCER
     Dosage: 34 MG, QD
     Route: 048
     Dates: end: 20190213
  2. NUPLAZID [Suspect]
     Active Substance: PIMAVANSERIN TARTRATE
     Indication: PROSTATE CANCER
     Dosage: 34 MG, QD
     Route: 048
     Dates: start: 20171016

REACTIONS (4)
  - Prostate cancer [Fatal]
  - Bone marrow disorder [Fatal]
  - Off label use [Unknown]
  - Refractory cytopenia with unilineage dysplasia [Fatal]

NARRATIVE: CASE EVENT DATE: 20171016
